FAERS Safety Report 4288426-0 (Version None)
Quarter: 2004Q1

REPORT INFORMATION
  Report Type: 
  Country: None (occurrence: None)
  Receive Date: 20040209
  Receipt Date: 20031002
  Transmission Date: 20041129
  Serious: No
  Sender: FDA-Public Use
  Company Number: US-GLAXOSMITHKLINE-A0428394A

PATIENT
  Age: 70 Year
  Sex: Female

DRUGS (4)
  1. PAXIL [Suspect]
     Indication: DEPRESSION
     Dosage: 60MG PER DAY
     Route: 048
     Dates: end: 20030928
  2. LORAZEPAM [Concomitant]
  3. LISINOPRIL [Concomitant]
  4. MULTI-VITAMIN [Concomitant]

REACTIONS (4)
  - DEPRESSION [None]
  - DRUG WITHDRAWAL SYNDROME [None]
  - FATIGUE [None]
  - PSYCHOMOTOR HYPERACTIVITY [None]
